FAERS Safety Report 8223846-0 (Version None)
Quarter: 2012Q1

REPORT INFORMATION
  Report Type: 
  Country: None (occurrence: None)
  Receive Date: 20120321
  Receipt Date: 20120312
  Transmission Date: 20120608
  Serious: Yes (Other)
  Sender: FDA-Public Use
  Company Number: CA-JNJFOC-20120306203

PATIENT
  Sex: Female
  Weight: 57 kg

DRUGS (2)
  1. REMICADE [Suspect]
     Indication: COLITIS ULCERATIVE
     Route: 042
     Dates: start: 20110826
  2. REMICADE [Suspect]
     Route: 042
     Dates: start: 20120202

REACTIONS (3)
  - PALPITATIONS [None]
  - INFUSION RELATED REACTION [None]
  - DIZZINESS [None]
